FAERS Safety Report 6076550-1 (Version None)
Quarter: 2009Q1

REPORT INFORMATION
  Report Type: 
  Country: None (occurrence: None)
  Receive Date: 20090213
  Receipt Date: 20090206
  Transmission Date: 20090719
  Serious: Yes (Other)
  Sender: FDA-Public Use
  Company Number: GB-BRISTOL-MYERS SQUIBB COMPANY-14504385

PATIENT

DRUGS (2)
  1. METFORMIN HCL [Suspect]
  2. GLICLAZIDE [Concomitant]

REACTIONS (4)
  - GRANULOMA [None]
  - LYMPHOMA [None]
  - PLEURAL EFFUSION [None]
  - SPLENOMEGALY [None]
